FAERS Safety Report 8968291 (Version 1)
Quarter: 2012Q4

REPORT INFORMATION
  Report Type: 
  Country: FR (occurrence: FR)
  Receive Date: 20121218
  Receipt Date: 20121218
  Transmission Date: 20130627
  Serious: Yes (Death, Life-Threatening, Other)
  Sender: FDA-Public Use
  Company Number: FR-BAYER-201033768GPV

PATIENT
  Age: 54 Year
  Sex: Male
  Weight: 48 kg

DRUGS (14)
  1. SORAFENIB (RAF KINASE INHIBITOR) [Suspect]
     Indication: NON-SMALL CELL LUNG CANCER
     Route: 048
     Dates: start: 20100611, end: 20100625
  2. OXYCODONE [Concomitant]
     Indication: PAIN NOS
     Dosage: 60 mg (Daily Dose), QD, oral
     Route: 048
     Dates: start: 20100702, end: 20100707
  3. AMOXICILLIN W/CLAVULANIC ACID [Concomitant]
     Indication: INFECTION
     Dosage: 3000 mg (Daily Dose), QD, oral
     Route: 048
     Dates: start: 20100702, end: 20100707
  4. OXYCONTIN [Concomitant]
     Indication: PAIN NOS
     Dates: start: 20100507, end: 20100610
  5. OXYCONTIN [Concomitant]
     Indication: PAIN NOS
     Dosage: As used dose: 20-80 MG
     Dates: start: 20100615, end: 20100701
  6. OXYCONTIN [Concomitant]
     Indication: PAIN NOS
     Dates: start: 20100702, end: 20100707
  7. BI-PROFENID [Concomitant]
     Indication: OSTEOARTHRITIS
     Dates: start: 20100416, end: 20100707
  8. INEXIUM [Concomitant]
     Indication: GASTRIC ULCER PROPHYLAXIS
     Dates: start: 20100604, end: 20100707
  9. DUROGESIC [Concomitant]
     Indication: PAIN NOS
     Dates: start: 20100611, end: 20100614
  10. FENTANYL [Concomitant]
     Indication: PAIN NOS
     Dates: start: 20100611, end: 20100707
  11. DEXERYL [Concomitant]
     Indication: PREMEDICATION
     Dates: start: 20100611, end: 20100707
  12. SERETIDE DISKUS [Concomitant]
     Indication: CHRONIC OBSTRUCTIVE PULMONARY DISEASE
     Dates: start: 20100615, end: 20100707
  13. SPIRIVA [Concomitant]
     Indication: CHRONIC OBSTRUCTIVE PULMONARY DISEASE
     Dates: start: 20100515, end: 20100707
  14. AUGMENTIN [Concomitant]
     Indication: LUNG INFECTION
     Dates: start: 20100702, end: 20100707

REACTIONS (4)
  - Disease progression [Fatal]
  - Nausea [Recovering/Resolving]
  - Vomiting [Not Recovered/Not Resolved]
  - Decreased appetite [Not Recovered/Not Resolved]
